FAERS Safety Report 19417135 (Version 1)
Quarter: 2021Q2

REPORT INFORMATION
  Report Type: Spontaneous
  Country: US (occurrence: US)
  Receive Date: 20210615
  Receipt Date: 20210615
  Transmission Date: 20210717
  Serious: Yes (Other)
  Sender: FDA-Public Use
  Company Number: US-GLAXOSMITHKLINE-US2021GSK129332

PATIENT
  Sex: Male

DRUGS (14)
  1. RANITIDINE. [Suspect]
     Active Substance: RANITIDINE
     Indication: GASTROOESOPHAGEAL REFLUX DISEASE
     Dosage: 25 MG OVER THE COUNTER
     Route: 065
     Dates: start: 199701, end: 201808
  2. RANITIDINE. [Suspect]
     Active Substance: RANITIDINE
     Dosage: 75 MG OVER THE COUNTER
     Route: 065
     Dates: start: 199701, end: 201808
  3. ZANTAC [Suspect]
     Active Substance: RANITIDINE HYDROCHLORIDE
     Indication: GASTROOESOPHAGEAL REFLUX DISEASE
     Dosage: 25 MG OVER THE COUNTER
     Route: 065
     Dates: start: 199701, end: 201808
  4. RANITIDINE. [Suspect]
     Active Substance: RANITIDINE
     Dosage: 75 MG OVER THE COUNTER
     Route: 065
     Dates: start: 199701, end: 201808
  5. ZANTAC [Suspect]
     Active Substance: RANITIDINE HYDROCHLORIDE
     Dosage: 150 MG, QD
     Route: 065
     Dates: start: 199701, end: 201808
  6. RANITIDINE. [Suspect]
     Active Substance: RANITIDINE
     Dosage: 150 MG, QD
     Route: 065
     Dates: start: 199701, end: 201808
  7. RANITIDINE. [Suspect]
     Active Substance: RANITIDINE
     Dosage: 150 MG, QD
     Route: 065
     Dates: start: 199701, end: 201808
  8. RANITIDINE. [Suspect]
     Active Substance: RANITIDINE
     Indication: GASTROOESOPHAGEAL REFLUX DISEASE
     Dosage: 25 MG OVER THE COUNTER
     Route: 065
     Dates: start: 199701, end: 201808
  9. RANITIDINE HYDROCHLORIDE. [Suspect]
     Active Substance: RANITIDINE HYDROCHLORIDE
     Indication: GASTROOESOPHAGEAL REFLUX DISEASE
     Dosage: 50 MG/ML BOTH
     Route: 065
     Dates: start: 199708, end: 201808
  10. RANITIDINE HYDROCHLORIDE. [Suspect]
     Active Substance: RANITIDINE HYDROCHLORIDE
     Dosage: 25 MG/ML BOTH
     Route: 065
     Dates: start: 199708, end: 201808
  11. ZANTAC [Suspect]
     Active Substance: RANITIDINE HYDROCHLORIDE
     Indication: GASTROOESOPHAGEAL REFLUX DISEASE
     Dosage: 75 MG OVER THE COUNTER
     Route: 065
     Dates: start: 199701, end: 201808
  12. ZANTAC [Suspect]
     Active Substance: RANITIDINE HYDROCHLORIDE
     Dosage: 75 MG OVER THE COUNTER
     Route: 065
     Dates: start: 199701, end: 201808
  13. ZANTAC [Suspect]
     Active Substance: RANITIDINE HYDROCHLORIDE
     Dosage: 150 MG, QD
     Route: 065
     Dates: start: 199701, end: 201808
  14. RANITIDINE HYDROCHLORIDE. [Suspect]
     Active Substance: RANITIDINE HYDROCHLORIDE
     Dosage: UNK

REACTIONS (1)
  - Colorectal cancer [Unknown]
